FAERS Safety Report 16198151 (Version 1)
Quarter: 2019Q2

REPORT INFORMATION
  Report Type: Spontaneous
  Country: IT (occurrence: IT)
  Receive Date: 20190415
  Receipt Date: 20190415
  Transmission Date: 20190711
  Serious: Yes (Hospitalization)
  Sender: FDA-Public Use
  Company Number: IT-AMGEN-ITANI2019055556

PATIENT
  Age: 45 Year
  Sex: Female

DRUGS (11)
  1. TRANSTEC [Concomitant]
     Active Substance: BUPRENORPHINE
     Dosage: 20 MILLIGRAM
     Route: 062
     Dates: start: 20180101
  2. MIMPARA [Suspect]
     Active Substance: CINACALCET HYDROCHLORIDE
     Indication: HYPERPARATHYROIDISM
     Dosage: 60 MILLIGRAM, QD
     Route: 048
     Dates: start: 20190120
  3. DELTACORTENE [Concomitant]
     Active Substance: PREDNISONE
     Dosage: 25 MILLIGRAM,COMPRESSE
     Route: 048
     Dates: start: 20180101
  4. DINTOINA [Concomitant]
     Active Substance: PHENYTOIN SODIUM
     Dosage: 100 MILLIGRAM
     Route: 048
     Dates: start: 20180101
  5. ENAPREN [Concomitant]
     Active Substance: ENALAPRIL MALEATE
     Dosage: 5 MILLIGRAM
     Route: 048
     Dates: start: 20180101
  6. AXAGON [ESOMEPRAZOLE] [Concomitant]
     Active Substance: ESOMEPRAZOLE
     Dosage: 20 MILLIGRAM
     Route: 048
     Dates: start: 20180101
  7. LEVETIRACETAM. [Concomitant]
     Active Substance: LEVETIRACETAM
     Dosage: 1 GRAM
     Route: 048
     Dates: start: 20181201
  8. LASIX [Concomitant]
     Active Substance: FUROSEMIDE
     Dosage: 25 MILLIGRAM
     Route: 048
     Dates: start: 20180101
  9. ADALAT [Concomitant]
     Active Substance: NIFEDIPINE
     Dosage: 10 MILLIGRAM
     Route: 048
     Dates: start: 20180101
  10. EPREX [Concomitant]
     Active Substance: ERYTHROPOIETIN
     Dosage: 10000 INTERNATIONAL UNIT PER MILLILITRE
     Route: 058
     Dates: start: 20180101
  11. FOLINA [FOLIC ACID] [Concomitant]
     Dosage: 5 MILLIGRAM
     Route: 048
     Dates: start: 20180101

REACTIONS (3)
  - Chest pain [Recovering/Resolving]
  - Abdominal pain upper [Recovering/Resolving]
  - Vomiting [Recovering/Resolving]

NARRATIVE: CASE EVENT DATE: 20190126
